FAERS Safety Report 19195136 (Version 6)
Quarter: 2025Q2

REPORT INFORMATION
  Report Type: Report from Study
  Country: DE (occurrence: DE)
  Receive Date: 20210429
  Receipt Date: 20250409
  Transmission Date: 20250716
  Serious: Yes (Hospitalization, Other)
  Sender: ROCHE
  Company Number: DE-ROCHE-2815096

PATIENT
  Age: 81 Year
  Sex: Male

DRUGS (5)
  1. TOCILIZUMAB [Suspect]
     Active Substance: TOCILIZUMAB
     Indication: Rheumatoid arthritis
     Route: 065
     Dates: start: 201203, end: 201203
  2. TOCILIZUMAB [Suspect]
     Active Substance: TOCILIZUMAB
     Route: 065
     Dates: start: 201207
  3. TOCILIZUMAB [Suspect]
     Active Substance: TOCILIZUMAB
     Route: 065
     Dates: start: 201310
  4. TOCILIZUMAB [Suspect]
     Active Substance: TOCILIZUMAB
     Route: 065
     Dates: start: 201402
  5. TOCILIZUMAB [Suspect]
     Active Substance: TOCILIZUMAB
     Indication: Rheumatoid arthritis
     Route: 058

REACTIONS (14)
  - Injury [Recovered/Resolved]
  - Impaired healing [Recovered/Resolved]
  - Fall [Unknown]
  - Contusion [Not Recovered/Not Resolved]
  - Spinal cord contusion [Not Recovered/Not Resolved]
  - Iron deficiency anaemia [Not Recovered/Not Resolved]
  - Dehydration [Recovered/Resolved]
  - Bursitis infective [Recovered/Resolved]
  - Herpes zoster [Unknown]
  - Subcutaneous abscess [Unknown]
  - Urinary tract infection [Unknown]
  - Benign prostatic hyperplasia [Unknown]
  - Cardiac failure [Unknown]
  - Joint injury [Recovered/Resolved]

NARRATIVE: CASE EVENT DATE: 20200115
